FAERS Safety Report 19058555 (Version 3)
Quarter: 2021Q4

REPORT INFORMATION
  Report Type: Spontaneous
  Country: US (occurrence: US)
  Receive Date: 20210325
  Receipt Date: 20211029
  Transmission Date: 20220304
  Serious: No
  Sender: FDA-Public Use
  Company Number: US-SA-SAC20210323000813

PATIENT
  Age: 54 Year
  Sex: Female

DRUGS (17)
  1. DUPIXENT [Suspect]
     Active Substance: DUPILUMAB
     Indication: Dermatitis atopic
     Dosage: 300 MG, QW
     Route: 058
     Dates: start: 20210107
  2. ESTRADIOL [Concomitant]
     Active Substance: ESTRADIOL
     Dosage: UNK
  3. HYDROXYZINE HYDROCHLORIDE [Concomitant]
     Active Substance: HYDROXYZINE HYDROCHLORIDE
     Dosage: UNK
  4. MONTELUKAST [Concomitant]
     Active Substance: MONTELUKAST SODIUM
     Dosage: UNK
  5. VALACYCLOVIR [Concomitant]
     Active Substance: VALACYCLOVIR HYDROCHLORIDE
     Dosage: UNK
  6. WIXELA INHUB [Concomitant]
     Active Substance: FLUTICASONE PROPIONATE\SALMETEROL XINAFOATE
     Dosage: UNK
  7. HYDROXYZINE [Concomitant]
     Active Substance: HYDROXYZINE HYDROCHLORIDE
  8. AMITRIPTYLINE [Concomitant]
     Active Substance: AMITRIPTYLINE
  9. AZITHROMYCIN ANHYDROUS [Concomitant]
     Active Substance: AZITHROMYCIN ANHYDROUS
  10. UNSPECIFIED INGREDIENT [Concomitant]
     Active Substance: UNSPECIFIED INGREDIENT
  11. TACROLIMUS [Concomitant]
     Active Substance: TACROLIMUS
  12. ZYRTEC [Concomitant]
     Active Substance: CETIRIZINE HYDROCHLORIDE
  13. FISH OIL [Concomitant]
     Active Substance: FISH OIL
  14. FOLIC ACID\IRON\MINERALS\VITAMINS [Concomitant]
     Active Substance: FOLIC ACID\IRON\MINERALS\VITAMINS
  15. SINGULAIR [Concomitant]
     Active Substance: MONTELUKAST SODIUM
     Dosage: UNK
  16. VITAMIN B12 [Concomitant]
     Active Substance: CYANOCOBALAMIN
  17. VITAMIN D NOS [Concomitant]
     Active Substance: VITAMIN D NOS

REACTIONS (5)
  - Urticaria [Not Recovered/Not Resolved]
  - Alopecia [Not Recovered/Not Resolved]
  - Discomfort [Not Recovered/Not Resolved]
  - Sleep disorder [Not Recovered/Not Resolved]
  - Rash [Not Recovered/Not Resolved]

NARRATIVE: CASE EVENT DATE: 20210101
